FAERS Safety Report 5401780-9 (Version None)
Quarter: 2007Q3

REPORT INFORMATION
  Report Type: 
  Country: None (occurrence: None)
  Receive Date: 20070731
  Receipt Date: 20070719
  Transmission Date: 20080115
  Serious: Yes (Other)
  Sender: FDA-Public Use
  Company Number: GB-PFIZER INC-2007061371

PATIENT
  Age: 36 Year
  Sex: Female

DRUGS (2)
  1. CHAMPIX [Suspect]
     Route: 048
  2. AMOXICILLIN [Concomitant]

REACTIONS (4)
  - ERYTHEMA OF EYELID [None]
  - EYELID OEDEMA [None]
  - FEELING HOT [None]
  - RASH [None]
